FAERS Safety Report 11568053 (Version 1)
Quarter: 2015Q3

REPORT INFORMATION
  Report Type: Spontaneous
  Country: US (occurrence: US)
  Receive Date: 20150916
  Receipt Date: 20150916
  Transmission Date: 20151125
  Serious: No
  Sender: FDA-Public Use
  Company Number: US-ELI_LILLY_AND_COMPANY-US200908001988

PATIENT
  Sex: Female

DRUGS (5)
  1. CALCIUM                                 /N/A/ [Concomitant]
  2. CALCIUM                                 /N/A/ [Concomitant]
     Dates: start: 20090808
  3. FORTEO [Suspect]
     Active Substance: TERIPARATIDE
     Indication: OSTEOPOROSIS
     Dates: start: 200905
  4. ACTONEL [Concomitant]
     Active Substance: RISEDRONATE SODIUM
  5. NEXIUM [Concomitant]
     Active Substance: ESOMEPRAZOLE MAGNESIUM

REACTIONS (1)
  - Bone pain [Recovering/Resolving]

NARRATIVE: CASE EVENT DATE: 2009
